FAERS Safety Report 20478120 (Version 3)
Quarter: 2022Q4

REPORT INFORMATION
  Report Type: Spontaneous
  Country: DE (occurrence: DE)
  Receive Date: 20220216
  Receipt Date: 20221020
  Transmission Date: 20230112
  Serious: Yes (Death, Life-Threatening, Hospitalization, Other)
  Sender: FDA-Public Use
  Company Number: DE-BRISTOL-MYERS SQUIBB COMPANY-BMS-2022-022675

PATIENT
  Age: 83 Year
  Sex: Female
  Weight: 76 kg

DRUGS (3)
  1. NIVOLUMAB [Suspect]
     Active Substance: NIVOLUMAB
     Indication: Metastatic malignant melanoma
     Dosage: 240 MILLIGRAM
     Route: 065
     Dates: start: 20220111, end: 20220125
  2. BISOPROLOL [Concomitant]
     Active Substance: BISOPROLOL
     Indication: Product used for unknown indication
     Dosage: 5 MILLIGRAM
     Route: 065
  3. CANDESARTAN [Concomitant]
     Active Substance: CANDESARTAN
     Indication: Product used for unknown indication
     Dosage: 8 MILLIGRAM
     Route: 065

REACTIONS (5)
  - Hepatitis [Fatal]
  - Myositis [Fatal]
  - Respiratory failure [Fatal]
  - Myasthenic syndrome [Unknown]
  - Arrhythmia [Unknown]

NARRATIVE: CASE EVENT DATE: 20220201
